FAERS Safety Report 4565711-6 (Version None)
Quarter: 2005Q1

REPORT INFORMATION
  Report Type: 
  Country: None (occurrence: None)
  Receive Date: 20050126
  Receipt Date: 20050114
  Transmission Date: 20050727
  Serious: Yes (Other)
  Sender: FDA-Public Use
  Company Number: 210941

PATIENT
  Age: 61 Year
  Sex: Female

DRUGS (1)
  1. RITUXAN [Suspect]
     Indication: CRYOGLOBULINAEMIA
     Dosage: 375 MG/M2, 1/WEEK
     Dates: start: 20031030, end: 20031120

REACTIONS (5)
  - BLOOD IMMUNOGLOBULIN M INCREASED [None]
  - CONDITION AGGRAVATED [None]
  - NEUROPATHY PERIPHERAL [None]
  - PARALYSIS [None]
  - WALDENSTROM'S MACROGLOBULINAEMIA [None]
